FAERS Safety Report 8315021-6 (Version None)
Quarter: 2012Q2

REPORT INFORMATION
  Report Type: 
  Country: None (occurrence: None)
  Receive Date: 20120426
  Receipt Date: 20120319
  Transmission Date: 20120825
  Serious: No
  Sender: FDA-Public Use
  Company Number: US-MUTUAL PHARMACEUTICAL COMPANY, INC.-CLHC20120023

PATIENT
  Sex: Male

DRUGS (2)
  1. COLCHICINE [Suspect]
     Indication: GOUT
     Route: 065
     Dates: end: 20040101
  2. COLCRYS [Concomitant]
     Indication: PROPHYLAXIS
     Route: 048

REACTIONS (3)
  - CHILLS [None]
  - NAUSEA [None]
  - DIARRHOEA [None]
